FAERS Safety Report 12632362 (Version 2)
Quarter: 2016Q3

REPORT INFORMATION
  Report Type: Spontaneous
  Country: US (occurrence: US)
  Receive Date: 20160808
  Receipt Date: 20160808
  Transmission Date: 20161109
  Serious: No
  Sender: FDA-Public Use
  Company Number: US-BEH-2016062628

PATIENT
  Sex: Female
  Weight: 47 kg

DRUGS (18)
  1. AUGMENTIN [Concomitant]
     Active Substance: AMOXICILLIN\CLAVULANATE POTASSIUM
  2. HIZENTRA [Suspect]
     Active Substance: HUMAN IMMUNOGLOBULIN G
     Indication: IMMUNODEFICIENCY COMMON VARIABLE
     Route: 058
  3. VITAMIN B12 [Concomitant]
     Active Substance: CYANOCOBALAMIN
  4. PROBIOTIC [Concomitant]
     Active Substance: PROBIOTICS NOS
  5. ENZYME DIGEST [Concomitant]
  6. ESCITALOPRAM [Concomitant]
     Active Substance: ESCITALOPRAM OXALATE
  7. SELENIUM [Concomitant]
     Active Substance: SELENIUM
  8. SOLGAR [Concomitant]
  9. ARMOUR THYROID [Concomitant]
     Active Substance: THYROID, PORCINE
  10. FOLIC ACID. [Concomitant]
     Active Substance: FOLIC ACID
  11. DIPHENHYDRAMINE. [Concomitant]
     Active Substance: DIPHENHYDRAMINE
  12. EPIPEN [Concomitant]
     Active Substance: EPINEPHRINE
  13. ALINIA [Concomitant]
     Active Substance: NITAZOXANIDE
  14. ZINC [Concomitant]
     Active Substance: ZINC\ZINC CHLORIDE
  15. MAGNESIUM [Concomitant]
     Active Substance: MAGNESIUM
  16. CLARITIN [Concomitant]
     Active Substance: LORATADINE
  17. ATIVAN [Concomitant]
     Active Substance: LORAZEPAM
  18. DIOVAN [Concomitant]
     Active Substance: VALSARTAN

REACTIONS (3)
  - Fatigue [Unknown]
  - Viral infection [Unknown]
  - Cough [Unknown]
